FAERS Safety Report 6557440-4 (Version None)
Quarter: 2010Q1

REPORT INFORMATION
  Report Type: 
  Country: None (occurrence: None)
  Receive Date: 20100129
  Receipt Date: 20100117
  Transmission Date: 20100710
  Serious: Yes (Hospitalization)
  Sender: FDA-Public Use
  Company Number: US-JNJFOC-20100107527

PATIENT
  Sex: Female

DRUGS (2)
  1. EXTRA STRENGTH TYLENOL PM [Suspect]
     Indication: DRUG USE FOR UNKNOWN INDICATION
  2. ROLAIDS [Suspect]
     Indication: DRUG USE FOR UNKNOWN INDICATION

REACTIONS (2)
  - INFECTION [None]
  - TRANSMISSION OF AN INFECTIOUS AGENT VIA A MEDICINAL PRODUCT [None]
